FAERS Safety Report 20232374 (Version 3)
Quarter: 2022Q1

REPORT INFORMATION
  Report Type: Spontaneous
  Country: US (occurrence: US)
  Receive Date: 20211227
  Receipt Date: 20220106
  Transmission Date: 20220424
  Serious: Yes (Hospitalization)
  Sender: FDA-Public Use
  Company Number: US-NOVOPROD-878829

PATIENT
  Sex: Female

DRUGS (1)
  1. OZEMPIC [Suspect]
     Active Substance: SEMAGLUTIDE
     Indication: Product used for unknown indication
     Dosage: 0.5 MG, QW
     Route: 058
     Dates: start: 2018

REACTIONS (4)
  - Osteoarthritis [Not Recovered/Not Resolved]
  - Rotator cuff syndrome [Recovering/Resolving]
  - Abdominal hernia [Recovering/Resolving]
  - Umbilical hernia [Recovering/Resolving]

NARRATIVE: CASE EVENT DATE: 20210401
